FAERS Safety Report 8784652 (Version 1)
Quarter: 2012Q4

REPORT INFORMATION
  Report Type: Spontaneous
  Country: US (occurrence: None)
  Receive Date: 20120907
  Receipt Date: 20120907
  Transmission Date: 20130627
  Serious: No
  Sender: FDA-Public Use
  Company Number: None

PATIENT
  Age: 66 Year
  Sex: Male
  Weight: 118.2 kg

DRUGS (1)
  1. DABIGATRAN [Suspect]
     Indication: ATRIAL FIBRILLATION WITH RAPID VENTRICULAR RESPONSE
     Route: 048
     Dates: start: 20120221, end: 20120507

REACTIONS (3)
  - Rectal haemorrhage [None]
  - Haemoglobin decreased [None]
  - Haemorrhage [None]
